FAERS Safety Report 25089314 (Version 1)
Quarter: 2025Q1

REPORT INFORMATION
  Report Type: Spontaneous
  Country: US (occurrence: US)
  Receive Date: 20250318
  Receipt Date: 20250318
  Transmission Date: 20250409
  Serious: No
  Sender: GRIFOLS
  Company Number: US-IGSA-BIG0033625

PATIENT
  Age: 61 Year
  Sex: Female

DRUGS (2)
  1. XEMBIFY [Suspect]
     Active Substance: HUMAN IMMUNOGLOBULIN G
     Indication: Rheumatoid arthritis
     Dosage: 20 GRAM, Q.2WK.
     Route: 058
     Dates: start: 20250304
  2. XEMBIFY [Suspect]
     Active Substance: HUMAN IMMUNOGLOBULIN G
     Indication: Immunodeficiency common variable
     Dosage: 20 GRAM, Q.2WK.
     Route: 058
     Dates: start: 202411

REACTIONS (1)
  - Infusion site urticaria [Not Recovered/Not Resolved]

NARRATIVE: CASE EVENT DATE: 20250306
